FAERS Safety Report 7433549-8 (Version None)
Quarter: 2011Q2

REPORT INFORMATION
  Report Type: 
  Country: None (occurrence: None)
  Receive Date: 20110422
  Receipt Date: 20110309
  Transmission Date: 20111010
  Serious: Yes (Death, Hospitalization)
  Sender: FDA-Public Use
  Company Number: PHHY2009JP54374

PATIENT
  Sex: Male

DRUGS (8)
  1. CARBIDOPA + LEVODOPA [Concomitant]
     Dosage: 300 MG, UNK
     Route: 048
  2. ENTACAPONE [Suspect]
     Dosage: 300 MG DAILY
     Route: 048
     Dates: start: 20010202, end: 20080316
  3. DROXIDOPA [Concomitant]
     Indication: PARKINSON'S DISEASE
     Dosage: 200 MG, UNK
     Route: 048
  4. SELEGILINE HYDROCHLORIDE [Concomitant]
     Indication: PARKINSON'S DISEASE
     Dosage: 5.0 MG, UNK
     Route: 048
  5. ENTACAPONE [Suspect]
     Indication: DRUG EFFECT DECREASED
     Dosage: 100 MG, DAILY
     Route: 048
     Dates: start: 20071222, end: 20080125
  6. ENTACAPONE [Suspect]
     Dosage: 200 MG, DAILY
     Route: 048
     Dates: start: 20080125, end: 20080201
  7. CARBIDOPA + LEVODOPA [Concomitant]
     Indication: PARKINSON'S DISEASE
     Dosage: 250 MG, UNK
     Route: 048
  8. ROPINIROLE HYDROCHLORIDE [Concomitant]
     Indication: PARKINSON'S DISEASE
     Dosage: 3 MG, UNK
     Route: 048

REACTIONS (5)
  - PYREXIA [None]
  - PNEUMONIA ASPIRATION [None]
  - RESPIRATORY FAILURE [None]
  - DEHYDRATION [None]
  - RENAL FAILURE ACUTE [None]
